FAERS Safety Report 5761570-4 (Version None)
Quarter: 2008Q2

REPORT INFORMATION
  Report Type: 
  Country: None (occurrence: None)
  Receive Date: 20080606
  Receipt Date: 20080526
  Transmission Date: 20081010
  Serious: Yes (Other)
  Sender: FDA-Public Use
  Company Number: BE-PFIZER INC-2008013621

PATIENT
  Sex: Male
  Weight: 70 kg

DRUGS (11)
  1. VFEND [Suspect]
     Indication: PROPHYLAXIS
     Route: 048
     Dates: start: 20050601, end: 20070501
  2. MEDROL [Concomitant]
  3. PROGRAFT [Concomitant]
  4. CELLCEPT [Concomitant]
  5. MIXTARD HUMAN 70/30 [Concomitant]
  6. ARANESP [Concomitant]
  7. PERINDOPRIL ERBUMINE [Concomitant]
  8. ENALAPRIL MALEATE [Concomitant]
  9. CIMETIDINE [Concomitant]
  10. NILSTAT [Concomitant]
  11. VALCYTE [Concomitant]

REACTIONS (2)
  - PHOTOSENSITIVITY REACTION [None]
  - SQUAMOUS CELL CARCINOMA OF SKIN [None]
